FAERS Safety Report 21448159 (Version 1)
Quarter: 2022Q4

REPORT INFORMATION
  Report Type: Spontaneous
  Country: US (occurrence: None)
  Receive Date: 20221011
  Receipt Date: 20221011
  Transmission Date: 20230112
  Serious: No
  Sender: FDA-Public Use
  Company Number: None

PATIENT
  Age: 72 Year
  Sex: Female

DRUGS (1)
  1. TAVABOROLE [Suspect]
     Active Substance: TAVABOROLE
     Indication: Dermatophytosis of nail
     Dosage: FREQUENCY : AT BEDTIME;?
     Dates: start: 202204

REACTIONS (1)
  - Surgery [None]
